FAERS Safety Report 6289170-0 (Version None)
Quarter: 2009Q3

REPORT INFORMATION
  Report Type: 
  Country: None (occurrence: None)
  Receive Date: 20090728
  Receipt Date: 20090715
  Transmission Date: 20100115
  Serious: Yes (Hospitalization)
  Sender: FDA-Public Use
  Company Number: JHP200900215

PATIENT
  Age: 68 Year
  Sex: Female
  Weight: 50 kg

DRUGS (21)
  1. DANTRIUM [Suspect]
     Indication: MUSCLE SPASMS
     Dosage: 25 MG, DAILY, ORAL
     Route: 048
     Dates: start: 20080830
  2. CELECOXIB [Suspect]
     Indication: OSTEOARTHRITIS
     Dosage: 100 MG, BID, ORAL
     Route: 048
     Dates: start: 20090418, end: 20090429
  3. LIMARMONE (LIMAPROST) [Suspect]
     Dosage: 15 UG, DAILY, ORAL
     Route: 048
     Dates: start: 20090321, end: 20090429
  4. ASPARA-CA (ASPARTATE CALCIUM) [Concomitant]
  5. ARTZ (HYALURONATE SODIUM) [Concomitant]
  6. ALDACTONE [Concomitant]
  7. LASIX [Concomitant]
  8. PREDNISOLONE [Concomitant]
  9. ALLOPURINOL [Concomitant]
  10. URSODIOL [Concomitant]
  11. EPL CAP. (LECITHIN) [Concomitant]
  12. MYONAL (EPIRIZOLE HYDROCHLORIDE) [Concomitant]
  13. DEPAS (ETIZOLAM) [Concomitant]
  14. FAMOTIDINE [Concomitant]
  15. PURSENNID (SENNA ALEXANDRINA LEAF) [Concomitant]
  16. ADONA (CARBAZOCHROME SODIUM SULFONATE) [Concomitant]
  17. LOXONIN (LOXOPROFEN) [Concomitant]
  18. SELBEX (TEPRENONE [Concomitant]
  19. HYALURONATE SODIUM (HYALURONATE SODIUM) [Concomitant]
  20. LAXOBERON (SODIUM PICOSULFATE) [Concomitant]
  21. KIPRES (MONTELUKAST SODIUM) [Concomitant]

REACTIONS (6)
  - NERVOUSNESS [None]
  - OROPHARYNGEAL PAIN [None]
  - PLATELET COUNT DECREASED [None]
  - PNEUMONIA [None]
  - PURPURA [None]
  - TOXIC SKIN ERUPTION [None]
